FAERS Safety Report 7222715-2 (Version None)
Quarter: 2011Q1

REPORT INFORMATION
  Report Type: 
  Country: None (occurrence: None)
  Receive Date: 20110106
  Receipt Date: 20110106
  Transmission Date: 20110831
  Serious: Yes (Disabling)
  Sender: FDA-Public Use
  Company Number: None

PATIENT
  Age: 57 Year
  Sex: Female
  Weight: 75 kg

DRUGS (1)
  1. LEVAQUIN [Suspect]
     Indication: RESPIRATORY TRACT INFECTION
     Dosage: 750 MG 1 PER DAY
     Dates: start: 20101215, end: 20101221

REACTIONS (10)
  - MUSCULOSKELETAL PAIN [None]
  - TENDON DISORDER [None]
  - NECK PAIN [None]
  - MOVEMENT DISORDER [None]
  - FATIGUE [None]
  - PAIN IN EXTREMITY [None]
  - JOINT SWELLING [None]
  - OEDEMA PERIPHERAL [None]
  - ARTHRALGIA [None]
  - CONDITION AGGRAVATED [None]
